FAERS Safety Report 8613738 (Version 3)
Quarter: 2013Q4

REPORT INFORMATION
  Report Type: Spontaneous
  Country: US (occurrence: US)
  Receive Date: 20120614
  Receipt Date: 20131025
  Transmission Date: 20140711
  Serious: Yes (Disabling, Other)
  Sender: FDA-Public Use
  Company Number: US-BAYER-2012-055864

PATIENT
  Age: 50 Year
  Sex: Female

DRUGS (4)
  1. CIPRO [Suspect]
     Indication: DENTAL CARE
     Dosage: 500 MG, QD
     Dates: start: 200906
  2. LIDOCAINE [Interacting]
     Dosage: UNK
     Dates: start: 200906
  3. NOVOCAIN [Concomitant]
     Indication: DENTAL CARE
     Dosage: UNK
     Dates: start: 200906
  4. NITROUS OXIDE [Concomitant]
     Indication: DENTAL CARE
     Dosage: UNK
     Dates: start: 200906

REACTIONS (29)
  - Nausea [None]
  - Diarrhoea [None]
  - Vomiting [None]
  - Facial pain [None]
  - Paraesthesia [None]
  - Face oedema [None]
  - Blister [None]
  - Pyrexia [None]
  - Chills [None]
  - Paraesthesia [None]
  - Muscular weakness [None]
  - Dropped head syndrome [None]
  - Sinusitis [None]
  - Trigeminal neuralgia [None]
  - Suicide attempt [None]
  - Pain [None]
  - Food intolerance [None]
  - Gastrointestinal pain [None]
  - Unevaluable event [None]
  - Feeling abnormal [None]
  - Muscle spasms [None]
  - Gastric disorder [None]
  - Food allergy [None]
  - Rash macular [None]
  - Pain in extremity [None]
  - Eye disorder [None]
  - Muscle disorder [None]
  - Personality change [None]
  - Drug interaction [None]
